FAERS Safety Report 11656121 (Version 3)
Quarter: 2015Q4

REPORT INFORMATION
  Report Type: Report from Study
  Country: US (occurrence: US)
  Receive Date: 20151023
  Receipt Date: 20151116
  Transmission Date: 20160304
  Serious: Yes (Other)
  Sender: FDA-Public Use
  Company Number: US-ASTRAZENECA-2015SE95952

PATIENT
  Age: 38 Year
  Sex: Female
  Weight: 122.5 kg

DRUGS (12)
  1. FUROSEMIDE. [Concomitant]
     Active Substance: FUROSEMIDE
     Indication: HYPERNATRAEMIA
     Route: 048
     Dates: start: 201412
  2. NADOLOL. [Concomitant]
     Active Substance: NADOLOL
     Indication: BLOOD PRESSURE ABNORMAL
     Route: 048
     Dates: start: 2010
  3. VITAMIN D [Concomitant]
     Active Substance: CHOLECALCIFEROL
     Indication: VITAMIN D DECREASED
     Dosage: 50000 IU EVERY MONDAY
     Dates: start: 201504
  4. SILDENAFIL. [Concomitant]
     Active Substance: SILDENAFIL
     Indication: PULMONARY HYPERTENSION
     Route: 048
     Dates: start: 201501
  5. PULMICORT RESPULES [Suspect]
     Active Substance: BUDESONIDE
     Indication: ASTHMA
     Dosage: 1 AMPULE, 5MG/2CC RESPULE BOX, TWO TIMES A DAY
     Route: 055
     Dates: start: 201507
  6. OMEPRAZOLE. [Suspect]
     Active Substance: OMEPRAZOLE
     Indication: GASTROOESOPHAGEAL REFLUX DISEASE
     Route: 048
     Dates: start: 2000
  7. NADOLOL. [Concomitant]
     Active Substance: NADOLOL
     Indication: HYPERTENSION
     Route: 048
     Dates: start: 2010
  8. ALPRAZOLAM. [Concomitant]
     Active Substance: ALPRAZOLAM
     Indication: ANXIETY
     Dosage: 0.5, THREE TIMES A DAY
     Route: 048
     Dates: start: 2009
  9. SYNTHROID [Concomitant]
     Active Substance: LEVOTHYROXINE SODIUM
     Indication: AUTOIMMUNE THYROIDITIS
     Dosage: TWO 75MCG MONDAY THROUGH FRIDAY, THEN 237 MCG ON SATURDAY AND SUNDAY IN THE MORNING
     Route: 048
     Dates: start: 1998
  10. NADOLOL. [Concomitant]
     Active Substance: NADOLOL
     Indication: HEART RATE ABNORMAL
     Route: 048
     Dates: start: 2010
  11. PULMICORT RESPULES [Suspect]
     Active Substance: BUDESONIDE
     Indication: ASTHMA
     Dosage: 0.5MG/2ML, 1 VIAL IN THE NEBULIZER TWICE A DAY, BUDESONIDE, MANUFACTURED BY TIVA
     Route: 065
  12. DUONEB [Concomitant]
     Active Substance: ALBUTEROL SULFATE\IPRATROPIUM BROMIDE
     Indication: ASTHMA
     Dosage: 0.5, 2.5MG/3ML, FOUR TIMES A DAY
     Route: 055
     Dates: start: 201501

REACTIONS (14)
  - Insomnia [Unknown]
  - Swelling [Unknown]
  - Lung disorder [Unknown]
  - Wheezing [Unknown]
  - Intentional product misuse [Unknown]
  - Asthma [Unknown]
  - Pulmonary arterial hypertension [Unknown]
  - Systemic lupus erythematosus [Unknown]
  - Cough [Unknown]
  - Dyspnoea [Recovering/Resolving]
  - Off label use [Unknown]
  - Cardiomegaly [Unknown]
  - Drug dose omission [Unknown]
  - Product use issue [Unknown]

NARRATIVE: CASE EVENT DATE: 2006
